FAERS Safety Report 10307021 (Version 1)
Quarter: 2014Q3

REPORT INFORMATION
  Report Type: Report from Study
  Country: BR (occurrence: BR)
  Receive Date: 20140715
  Receipt Date: 20140715
  Transmission Date: 20150326
  Serious: Yes (Death, Other)
  Sender: FDA-Public Use
  Company Number: PHHY2014BR086831

PATIENT
  Sex: Female

DRUGS (3)
  1. DIOVAN AMLO [Suspect]
     Active Substance: AMLODIPINE\VALSARTAN
     Dosage: 1 TABLET (160/5 MG), DAILY
     Route: 048
  2. CALCIUM ACTIVATED//CALCIUM [Suspect]
     Active Substance: CALCIUM
     Dosage: UNK
  3. AAS [Concomitant]
     Active Substance: ASPIRIN
     Indication: ANTICOAGULANT THERAPY
     Dosage: UNK UKN, UNK

REACTIONS (2)
  - Infarction [Fatal]
  - Acute pulmonary oedema [Fatal]
